FAERS Safety Report 9709331 (Version 4)
Quarter: 2013Q4

REPORT INFORMATION
  Report Type: Spontaneous
  Country: DE (occurrence: DE)
  Receive Date: 20131125
  Receipt Date: 20131219
  Transmission Date: 20140711
  Serious: Yes (Life-Threatening, Hospitalization)
  Sender: FDA-Public Use
  Company Number: DE-US-EMD SERONO, INC.-7251049

PATIENT
  Age: 66 Year
  Sex: Male
  Weight: 80 kg

DRUGS (2)
  1. REBIF [Suspect]
     Indication: MULTIPLE SCLEROSIS
     Route: 058
     Dates: start: 20131108, end: 20131115
  2. REBIF [Suspect]
     Route: 058
     Dates: start: 20131120, end: 20131120

REACTIONS (6)
  - Bronchitis [Unknown]
  - Muscular weakness [Unknown]
  - Hypersensitivity [Recovered/Resolved]
  - Microcytic anaemia [Unknown]
  - Neutralising antibodies [Unknown]
  - Fatigue [Unknown]
